FAERS Safety Report 7473840-2 (Version None)
Quarter: 2011Q2

REPORT INFORMATION
  Report Type: 
  Country: None (occurrence: None)
  Receive Date: 20110503
  Receipt Date: 20110426
  Transmission Date: 20111010
  Serious: Yes (Hospitalization)
  Sender: FDA-Public Use
  Company Number: 2011SP018611

PATIENT
  Age: 45 Year
  Sex: Female

DRUGS (5)
  1. SPINAL ANESTHESIA [Concomitant]
  2. ACETAMINOPHEN [Concomitant]
  3. NUVARING [Suspect]
     Indication: CONTRACEPTION
     Dosage: VAG
     Route: 067
  4. CODEINE [Concomitant]
  5. ACETAMINOPHEN W/ CODEINE [Concomitant]

REACTIONS (8)
  - VOMITING [None]
  - FOOT OPERATION [None]
  - NEUROLOGICAL SYMPTOM [None]
  - PULMONARY EMBOLISM [None]
  - PNEUMONIA [None]
  - BACK PAIN [None]
  - PYREXIA [None]
  - HAEMOPTYSIS [None]
